FAERS Safety Report 6100984-X (Version None)
Quarter: 2009Q1

REPORT INFORMATION
  Report Type: 
  Country: None (occurrence: None)
  Receive Date: 20090220
  Receipt Date: 20090205
  Transmission Date: 20090719
  Serious: Yes (Hospitalization)
  Sender: FDA-Public Use
  Company Number: B0559117A

PATIENT
  Sex: 0

DRUGS (1)
  1. VALACYCLOVIR HCL [Suspect]
     Indication: HERPES SIMPLEX

REACTIONS (1)
  - STEVENS-JOHNSON SYNDROME [None]
